FAERS Safety Report 7495365-0 (Version None)
Quarter: 2011Q2

REPORT INFORMATION
  Report Type: 
  Country: None (occurrence: None)
  Receive Date: 20110523
  Receipt Date: 20110511
  Transmission Date: 20111010
  Serious: No
  Sender: FDA-Public Use
  Company Number: US-BIOGENIDEC-2010BI028599

PATIENT
  Age: 47 Year
  Sex: Female

DRUGS (1)
  1. TYSABRI [Suspect]
     Indication: MULTIPLE SCLEROSIS
     Route: 042
     Dates: start: 20091208, end: 20100614

REACTIONS (6)
  - MULTIPLE SCLEROSIS [None]
  - SPEECH DISORDER [None]
  - GAIT DISTURBANCE [None]
  - PERONEAL NERVE PALSY [None]
  - HYPOAESTHESIA [None]
  - FALL [None]
